FAERS Safety Report 22624856 (Version 7)
Quarter: 2024Q1

REPORT INFORMATION
  Report Type: Report from Study
  Country: US (occurrence: US)
  Receive Date: 20230621
  Receipt Date: 20240304
  Transmission Date: 20240410
  Serious: Yes (Hospitalization)
  Sender: FDA-Public Use
  Company Number: US-ARGENX-2023-ARGX-US001732

PATIENT

DRUGS (2)
  1. VYVGART [Suspect]
     Active Substance: EFGARTIGIMOD ALFA-FCAB
     Indication: Myasthenia gravis
     Dosage: 10 MG/KG
     Route: 042
     Dates: start: 20230526
  2. VYVGART [Suspect]
     Active Substance: EFGARTIGIMOD ALFA-FCAB
     Dosage: 10 MG/KG
     Route: 042

REACTIONS (23)
  - Cardiac disorder [Unknown]
  - Renal disorder [Recovered/Resolved]
  - Fall [Unknown]
  - Balance disorder [Unknown]
  - Myasthenia gravis [Unknown]
  - End stage renal disease [Not Recovered/Not Resolved]
  - Pulmonary congestion [Not Recovered/Not Resolved]
  - Cerebrovascular accident [Unknown]
  - Diarrhoea [Unknown]
  - Throat tightness [Unknown]
  - Hypertension [Unknown]
  - Weight increased [Unknown]
  - Swelling [Unknown]
  - Insurance issue [Unknown]
  - Therapy interrupted [Unknown]
  - Therapy cessation [Unknown]
  - Inappropriate schedule of product administration [Unknown]
  - Throat tightness [Unknown]
  - Dyspnoea [Unknown]
  - Dysphagia [Unknown]
  - Eyelid ptosis [Unknown]
  - Nausea [Unknown]
  - Blood pressure abnormal [Unknown]

NARRATIVE: CASE EVENT DATE: 20230613
